FAERS Safety Report 6519774-9 (Version None)
Quarter: 2009Q4

REPORT INFORMATION
  Report Type: 
  Country: None (occurrence: None)
  Receive Date: 20091228
  Receipt Date: 20091228
  Transmission Date: 20100525
  Serious: No
  Sender: FDA-Public Use
  Company Number: None

PATIENT
  Age: 76 Year
  Sex: Male

DRUGS (1)
  1. ZOLPIDEM [Suspect]
     Dosage: 10 MG EVERY DAY PO
     Route: 048
     Dates: start: 20030930, end: 20080704

REACTIONS (1)
  - SOMNAMBULISM [None]
